FAERS Safety Report 15007474 (Version 1)
Quarter: 2018Q2

REPORT INFORMATION
  Report Type: Report from Study
  Country: US (occurrence: US)
  Receive Date: 20180613
  Receipt Date: 20180613
  Transmission Date: 20180711
  Serious: No
  Sender: FDA-Public Use
  Company Number: PHEH2018US023353

PATIENT
  Age: 25 Year

DRUGS (1)
  1. TEGRETOL XR [Suspect]
     Active Substance: CARBAMAZEPINE
     Indication: EPILEPSY
     Dosage: 2100 MG, UNK
     Route: 048
     Dates: start: 20180530, end: 20180530

REACTIONS (1)
  - Prescribed overdose [Recovered/Resolved]

NARRATIVE: CASE EVENT DATE: 20180530
